FAERS Safety Report 7308123-4 (Version None)
Quarter: 2011Q1

REPORT INFORMATION
  Report Type: 
  Country: None (occurrence: None)
  Receive Date: 20110223
  Receipt Date: 20110215
  Transmission Date: 20110831
  Serious: Yes (Death)
  Sender: FDA-Public Use
  Company Number: US-ROCHE-757235

PATIENT
  Sex: Male

DRUGS (2)
  1. XELODA [Suspect]
     Indication: COLON CANCER
     Route: 048
     Dates: start: 20100816, end: 20100927
  2. XELODA [Suspect]
     Route: 048
     Dates: start: 20100927, end: 20110107

REACTIONS (1)
  - NEOPLASM MALIGNANT [None]
